FAERS Safety Report 7366975-6 (Version None)
Quarter: 2011Q1

REPORT INFORMATION
  Report Type: 
  Country: None (occurrence: None)
  Receive Date: 20110322
  Receipt Date: 20110311
  Transmission Date: 20110831
  Serious: Yes (Other)
  Sender: FDA-Public Use
  Company Number: US-PFIZER INC-2006059570

PATIENT
  Sex: Female

DRUGS (2)
  1. NEURONTIN [Suspect]
     Dosage: 300 MG, 3X/DAY
     Route: 048
  2. NEURONTIN [Suspect]
     Dosage: 900 MG, 3X/DAY
     Route: 048

REACTIONS (1)
  - SUICIDAL IDEATION [None]
